FAERS Safety Report 22211594 (Version 1)
Quarter: 2023Q2

REPORT INFORMATION
  Report Type: Spontaneous
  Country: US (occurrence: None)
  Receive Date: 20230413
  Receipt Date: 20230413
  Transmission Date: 20230721
  Serious: No
  Sender: FDA-Public Use
  Company Number: None

PATIENT
  Sex: 0

DRUGS (2)
  1. MESALAMINE [Suspect]
     Active Substance: MESALAMINE
     Indication: Proctitis ulcerative
     Dosage: FREQUENCY : AT BEDTIME;?
     Route: 054
     Dates: start: 20221104, end: 20221121
  2. MESALAMINE [Suspect]
     Active Substance: MESALAMINE
     Indication: Colitis ulcerative

REACTIONS (5)
  - Chest pain [None]
  - Back pain [None]
  - Oropharyngeal pain [None]
  - Pain in jaw [None]
  - Therapy cessation [None]

NARRATIVE: CASE EVENT DATE: 20221118
